FAERS Safety Report 9696321 (Version 2)
Quarter: 2013Q4

REPORT INFORMATION
  Report Type: Spontaneous
  Country: US (occurrence: US)
  Receive Date: 20131119
  Receipt Date: 20131119
  Transmission Date: 20140711
  Serious: Yes (Hospitalization, Disabling, Other)
  Sender: FDA-Public Use
  Company Number: US-009507513-1205USA00954

PATIENT
  Sex: Female
  Weight: 67.12 kg

DRUGS (6)
  1. FOSAMAX [Suspect]
     Indication: OSTEOPENIA
     Dosage: 70 MG, QW
     Route: 048
     Dates: start: 200406, end: 201003
  2. FOSAMAX [Suspect]
     Route: 048
  3. ALENDRONATE SODIUM [Suspect]
     Indication: OSTEOPENIA
     Dosage: 70 MG/75CC, UNK
     Route: 048
  4. ALENDRONATE SODIUM [Suspect]
     Dosage: 70 MG, UNK
  5. CALCIUM (UNSPECIFIED) [Concomitant]
     Indication: OSTEOPENIA
     Dosage: 1500 MG, UNK
  6. VITAMIN D (UNSPECIFIED) [Concomitant]
     Indication: OSTEOPENIA
     Dosage: UNK

REACTIONS (40)
  - Intramedullary rod insertion [Unknown]
  - Low turnover osteopathy [Not Recovered/Not Resolved]
  - Osteoporosis [Not Recovered/Not Resolved]
  - Femur fracture [Unknown]
  - Stress fracture [Not Recovered/Not Resolved]
  - Femur fracture [Recovered/Resolved]
  - Hypothyroidism [Unknown]
  - Foot fracture [Unknown]
  - Calcium deficiency [Unknown]
  - Anxiety [Unknown]
  - Gingival graft [Unknown]
  - Vitamin D decreased [Unknown]
  - Myositis ossificans [Unknown]
  - Otitis media acute [Unknown]
  - Acute sinusitis [Unknown]
  - Acute sinusitis [Unknown]
  - Pharyngitis [Unknown]
  - Muscular weakness [Unknown]
  - Bone scan abnormal [Unknown]
  - Osteoarthritis [Unknown]
  - Osteoarthritis [Unknown]
  - Osteoarthritis [Unknown]
  - Facet joint syndrome [Unknown]
  - Hypertension [Unknown]
  - Liver function test abnormal [Unknown]
  - Arthropathy [Unknown]
  - Spinal disorder [Unknown]
  - Sciatica [Unknown]
  - Patellofemoral pain syndrome [Unknown]
  - Synovial cyst [Unknown]
  - Sinus operation [Unknown]
  - Depression [Unknown]
  - Affective disorder [Unknown]
  - Adverse drug reaction [Unknown]
  - Knee operation [Unknown]
  - Headache [Unknown]
  - Arthralgia [Unknown]
  - Constipation [Unknown]
  - Musculoskeletal pain [Unknown]
  - Bone pain [Unknown]
